FAERS Safety Report 23200999 (Version 1)
Quarter: 2023Q4

REPORT INFORMATION
  Report Type: Spontaneous
  Country: FR (occurrence: FR)
  Receive Date: 20231118
  Receipt Date: 20231118
  Transmission Date: 20240110
  Serious: Yes (Hospitalization)
  Sender: FDA-Public Use
  Company Number: None

PATIENT
  Age: 49 Year
  Sex: Female
  Weight: 45.8 kg

DRUGS (3)
  1. PANTOPRAZOLE [Suspect]
     Active Substance: PANTOPRAZOLE
     Indication: Abdominal pain upper
     Dosage: 40 MILLIGRAM DAILY; 1 TABLET PER DAY
     Dates: start: 20230616, end: 20230618
  2. FIDAXOMICIN [Suspect]
     Active Substance: FIDAXOMICIN
     Indication: Clostridium difficile infection
     Dosage: 400 MILLIGRAM DAILY; 1 TABLET MORNING AND EVENING FOR 10 DAYS
     Dates: start: 20230616
  3. PHLOROGLUCINOL [Concomitant]
     Active Substance: PHLOROGLUCINOL
     Indication: Colitis ulcerative
     Dosage: AN AMPOULE IF NECESSARY MORNING, NOON AND EVENING, FORM STRENGTH : 40 MG/0.04 MG PER 4 ML
     Dates: start: 20230616

REACTIONS (1)
  - Neutropenia [Not Recovered/Not Resolved]

NARRATIVE: CASE EVENT DATE: 20230619
